FAERS Safety Report 4743679-7 (Version None)
Quarter: 2005Q3

REPORT INFORMATION
  Report Type: 
  Country: None (occurrence: None)
  Receive Date: 20050812
  Receipt Date: 20050804
  Transmission Date: 20060218
  Serious: Yes (Other)
  Sender: FDA-Public Use
  Company Number: CH-SANOFI-SYNTHELABO-A01200505355

PATIENT
  Age: 95 Year
  Sex: Male

DRUGS (6)
  1. PLAVIX [Suspect]
     Indication: ATHEROSCLEROSIS
     Route: 048
     Dates: start: 20050205, end: 20050305
  2. CANDESARTAN [Suspect]
     Indication: ESSENTIAL HYPERTENSION
     Route: 048
  3. NITRODERM TTS 5 [Suspect]
     Indication: ESSENTIAL HYPERTENSION
     Dosage: 5 MG
     Route: 062
  4. ASPIRIN [Concomitant]
     Indication: ATHEROSCLEROSIS
     Route: 048
  5. DANCOR [Concomitant]
     Indication: ESSENTIAL HYPERTENSION
     Route: 048
  6. TORSEMIDE [Concomitant]
     Indication: ESSENTIAL HYPERTENSION
     Route: 048

REACTIONS (2)
  - AGEUSIA [None]
  - CONDITION AGGRAVATED [None]
